FAERS Safety Report 5064240-3 (Version None)
Quarter: 2006Q3

REPORT INFORMATION
  Report Type: 
  Country: None (occurrence: None)
  Receive Date: 20060726
  Receipt Date: 20060726
  Transmission Date: 20061208
  Serious: Yes (Other)
  Sender: FDA-Public Use
  Company Number: None

PATIENT
  Age: 56 Year
  Sex: Male
  Weight: 85.2762 kg

DRUGS (1)
  1. ASPIRIN [Suspect]
     Dosage: 1 TABLET DAILY PO
     Route: 048

REACTIONS (6)
  - GASTRIC ULCER [None]
  - GASTROINTESTINAL HAEMORRHAGE [None]
  - HELICOBACTER INFECTION [None]
  - NODULE [None]
  - PORTAL HYPERTENSIVE GASTROPATHY [None]
  - REFUSAL OF TREATMENT BY PATIENT [None]
